FAERS Safety Report 8549681-1 (Version None)
Quarter: 2012Q3

REPORT INFORMATION
  Report Type: 
  Country: None (occurrence: None)
  Receive Date: 20120730
  Receipt Date: 20120724
  Transmission Date: 20120928
  Serious: Yes (Hospitalization, Other)
  Sender: FDA-Public Use
  Company Number: US-PFIZER INC-2012115760

PATIENT
  Sex: Female
  Weight: 100.68 kg

DRUGS (21)
  1. FAMOTIDINE [Concomitant]
     Dosage: 20 MG, 2X/DAY
  2. METOPROLOL [Concomitant]
     Dosage: 50 MG, 2X/DAY
  3. METOPROLOL [Concomitant]
     Dosage: 50 MG, 2X/DAY
  4. LEVOTHYROXINE [Concomitant]
     Dosage: UNK
  5. SIMVASTATIN [Concomitant]
     Dosage: 10 MG, 1X/DAY
  6. SULINDAC [Concomitant]
     Dosage: 150 MG, 2X/DAY
  7. LORATADINE [Concomitant]
     Dosage: 10 MG, 1X/DAY
  8. SPIRONOLACTONE [Concomitant]
     Dosage: 25 MG, 2X/DAY
  9. VENLAFAXINE [Concomitant]
     Dosage: 75 MG, UNK
  10. FAMOTIDINE [Concomitant]
     Dosage: 20 MG, 2X/DAY
  11. ORPHENADRINE [Concomitant]
     Dosage: UNK
  12. KETOPROFEN [Concomitant]
     Dosage: 100 MG, 1X/DAY
  13. SIMVASTATIN [Concomitant]
     Dosage: 10 MG, 1X/DAY
  14. LYRICA [Suspect]
     Indication: FIBROMYALGIA
     Dosage: 150 MG, 2X/DAY
     Route: 048
     Dates: end: 20120301
  15. METFORMIN [Concomitant]
     Dosage: 500 MG, 2X/DAY
  16. SULINDAC [Concomitant]
     Dosage: 150 MG, 2X/DAY
  17. LYRICA [Suspect]
     Dosage: 150 MG, 2X/DAY
     Route: 048
     Dates: start: 20120401
  18. METFORMIN [Concomitant]
     Dosage: 500 MG, 2X/DAY
  19. LORATADINE [Concomitant]
     Dosage: 10 MG, 1X/DAY
  20. SPIRONOLACTONE [Concomitant]
     Dosage: 25 MG, 2X/DAY
  21. VENLAFAXINE [Concomitant]
     Dosage: 75 MG, UNK

REACTIONS (15)
  - DIABETES MELLITUS [None]
  - WEIGHT DECREASED [None]
  - HEARING IMPAIRED [None]
  - HYPOTHYROIDISM [None]
  - VOMITING [None]
  - SINUSITIS [None]
  - EAR INFECTION [None]
  - MALAISE [None]
  - CONFUSIONAL STATE [None]
  - DEHYDRATION [None]
  - EAR DISORDER [None]
  - DEAFNESS [None]
  - AMNESIA [None]
  - TYMPANIC MEMBRANE PERFORATION [None]
  - DIZZINESS [None]
